FAERS Safety Report 5836273-8 (Version None)
Quarter: 2008Q3

REPORT INFORMATION
  Report Type: 
  Country: None (occurrence: None)
  Receive Date: 20080807
  Receipt Date: 20080728
  Transmission Date: 20090109
  Serious: Yes (Other)
  Sender: FDA-Public Use
  Company Number: DE-BRISTOL-MYERS SQUIBB COMPANY-14248827

PATIENT
  Age: 77 Year
  Sex: Female

DRUGS (1)
  1. ERBITUX [Suspect]
     Indication: COLORECTAL CANCER STAGE IV
     Dosage: ERBITUX 2 MG/ML INITIATED ON 20SEP07 WITH DOSE:250 MG/M2
     Route: 042
     Dates: start: 20080327, end: 20080327

REACTIONS (1)
  - SENSATION OF FOREIGN BODY [None]
